FAERS Safety Report 17088925 (Version 5)
Quarter: 2020Q2

REPORT INFORMATION
  Report Type: Spontaneous
  Country: US (occurrence: US)
  Receive Date: 20191128
  Receipt Date: 20200619
  Transmission Date: 20200713
  Serious: No
  Sender: FDA-Public Use
  Company Number: US-HTU-2019US019702

PATIENT
  Age: 77 Year
  Sex: Male

DRUGS (2)
  1. VALCHLOR [Suspect]
     Active Substance: MECHLORETHAMINE
     Indication: CUTANEOUS T-CELL LYMPHOMA
     Dosage: UNK, 3/WEEK
     Route: 061
     Dates: start: 201910
  2. VALCHLOR [Suspect]
     Active Substance: MECHLORETHAMINE
     Dosage: UNK, QD
     Route: 061
     Dates: end: 20200227

REACTIONS (14)
  - Application site pruritus [Recovering/Resolving]
  - Off label use [Recovered/Resolved]
  - Application site hypersensitivity [Unknown]
  - Rash [Unknown]
  - Application site exfoliation [Unknown]
  - Intentional dose omission [Unknown]
  - Application site wound [Recovering/Resolving]
  - Application site erosion [Recovering/Resolving]
  - Application site erythema [Unknown]
  - Chills [Recovering/Resolving]
  - Application site warmth [Recovering/Resolving]
  - Scratch [Unknown]
  - Application site discolouration [Unknown]
  - Application site haemorrhage [Recovering/Resolving]

NARRATIVE: CASE EVENT DATE: 201912
